FAERS Safety Report 12538121 (Version 1)
Quarter: 2016Q3

REPORT INFORMATION
  Report Type: Report from Study
  Country: IL (occurrence: IL)
  Receive Date: 20160707
  Receipt Date: 20160707
  Transmission Date: 20161109
  Serious: Yes (Hospitalization, Other)
  Sender: FDA-Public Use
  Company Number: PHHY2016IL093192

PATIENT
  Sex: Female
  Weight: 56 kg

DRUGS (1)
  1. SANDOSTATIN LAR DEPOT [Suspect]
     Active Substance: OCTREOTIDE ACETATE
     Indication: PANCREATIC NEUROENDOCRINE TUMOUR
     Dosage: 30 MG, QMO (1Q4W)
     Route: 030
     Dates: start: 20100614

REACTIONS (3)
  - Malignant neoplasm progression [Unknown]
  - Pancreatic neoplasm [Unknown]
  - Metastases to liver [Unknown]
